FAERS Safety Report 21342344 (Version 1)
Quarter: 2022Q3

REPORT INFORMATION
  Report Type: Spontaneous
  Country: US (occurrence: US)
  Receive Date: 20220916
  Receipt Date: 20220916
  Transmission Date: 20221027
  Serious: No
  Sender: FDA-Public Use
  Company Number: US-NEBO-PC009004

PATIENT
  Sex: Female

DRUGS (1)
  1. MONOFERRIC [Suspect]
     Active Substance: FERRIC DERISOMALTOSE
     Indication: Heavy menstrual bleeding
     Dates: start: 202207, end: 202207

REACTIONS (2)
  - Dyspnoea [Unknown]
  - Chromaturia [Unknown]

NARRATIVE: CASE EVENT DATE: 20220701
